FAERS Safety Report 10802043 (Version 1)
Quarter: 2015Q1

REPORT INFORMATION
  Report Type: Spontaneous
  Country: FR (occurrence: FR)
  Receive Date: 20150217
  Receipt Date: 20150217
  Transmission Date: 20150721
  Serious: Yes (Death)
  Sender: FDA-Public Use
  Company Number: FR-EUSA PHARMA-2015-FR-002123

PATIENT

DRUGS (1)
  1. ERWINASE [Suspect]
     Active Substance: ASPARAGINASE ERWINIA CHRYSANTHEMI
     Indication: B-CELL LYMPHOMA RECURRENT
     Dosage: 5 DOSES

REACTIONS (3)
  - Acute respiratory distress syndrome [Fatal]
  - Hypersensitivity [Unknown]
  - Bacterial infection [Fatal]
